FAERS Safety Report 9913487 (Version 1)
Quarter: 2014Q1

REPORT INFORMATION
  Report Type: Spontaneous
  Country: IT (occurrence: None)
  Receive Date: 20140218
  Receipt Date: 20140218
  Transmission Date: 20141002
  Serious: Yes (Other)
  Sender: FDA-Public Use
  Company Number: AXC-2014-000111

PATIENT
  Sex: Male

DRUGS (1)
  1. NITROGLYCERIN (NITROGLYCERIN) UNKNOWN [Suspect]
     Indication: PRODUCT USED FOR UNKNOWN INDICATION

REACTIONS (4)
  - Dyspnoea [None]
  - Hypersensitivity [None]
  - Local reaction [None]
  - Pruritus [None]
